FAERS Safety Report 15093758 (Version 12)
Quarter: 2019Q3

REPORT INFORMATION
  Report Type: Spontaneous
  Country: US (occurrence: US)
  Receive Date: 20180629
  Receipt Date: 20190911
  Transmission Date: 20191004
  Serious: Yes (Hospitalization, Other)
  Sender: FDA-Public Use
  Company Number: US-ACTELION-A-NJ2018-174287

PATIENT
  Age: 74 Year
  Sex: Male

DRUGS (6)
  1. VELETRI [Suspect]
     Active Substance: EPOPROSTENOL
     Indication: PULMONARY ARTERIAL HYPERTENSION
     Dosage: 35 NG/KG, PER MIN
     Route: 042
     Dates: start: 20180525
  2. VELETRI [Suspect]
     Active Substance: EPOPROSTENOL
     Dosage: 17 NG/KG, PER MIN
     Route: 042
  3. VELETRI [Suspect]
     Active Substance: EPOPROSTENOL
     Dosage: 12 NG/KG, PER MIN
     Route: 042
  4. VELETRI [Suspect]
     Active Substance: EPOPROSTENOL
     Dosage: 15 NG/KG, PER MIN
     Route: 042
  5. VELETRI [Suspect]
     Active Substance: EPOPROSTENOL
     Dosage: 33 NG/KG, PER MIN
     Route: 042
     Dates: start: 20180525
  6. VELETRI [Suspect]
     Active Substance: EPOPROSTENOL
     Dosage: 13 NG/KG, PER MIN
     Route: 042
     Dates: start: 20180525

REACTIONS (18)
  - Central venous catheterisation [Unknown]
  - Contusion [Unknown]
  - Respiratory tract infection [Unknown]
  - Malaise [Unknown]
  - Oxygen consumption increased [Unknown]
  - Product dose omission [Recovered/Resolved]
  - Fall [Unknown]
  - Pain [Unknown]
  - Fatigue [Unknown]
  - Pneumonia [Recovering/Resolving]
  - Flushing [Unknown]
  - Mental status changes [Unknown]
  - Pain in jaw [Recovering/Resolving]
  - Arteriovenous fistula operation [Unknown]
  - Nausea [Recovering/Resolving]
  - Sepsis [Unknown]
  - Haemodialysis [Unknown]
  - Device breakage [Recovered/Resolved]

NARRATIVE: CASE EVENT DATE: 20180624
